FAERS Safety Report 9384816 (Version 1)
Quarter: 2013Q3

REPORT INFORMATION
  Report Type: Spontaneous
  Country: ES (occurrence: None)
  Receive Date: 20130701
  Receipt Date: 20130701
  Transmission Date: 20140515
  Serious: Yes (Other)
  Sender: FDA-Public Use
  Company Number: ES-1198914

PATIENT
  Age: 89 Year
  Sex: Female

DRUGS (4)
  1. NEVANAC 0.1% OPTHALMIC SUSPENSION (NEVANAC 0.1% [Suspect]
     Indication: POSTOPERATIVE CARE
     Route: 047
     Dates: start: 20130522, end: 20130618
  2. NOLOTIL /SPA/ [Concomitant]
  3. OLMETEC PLUS [Concomitant]
  4. SAFLUTAN [Concomitant]

REACTIONS (4)
  - Chest pain [None]
  - Hyperhidrosis [None]
  - Headache [None]
  - Off label use [None]
